FAERS Safety Report 25807724 (Version 1)
Quarter: 2025Q3

REPORT INFORMATION
  Report Type: Spontaneous
  Country: MX (occurrence: MX)
  Receive Date: 20250916
  Receipt Date: 20250916
  Transmission Date: 20251020
  Serious: Yes (Other)
  Sender: INCYTE
  Company Number: MX-GRUPO BIOTOSCANA S.A.-2025-09-MX-01212

PATIENT
  Age: 63 Year

DRUGS (3)
  1. TAFASITAMAB [Suspect]
     Active Substance: TAFASITAMAB
     Indication: Follicular lymphoma
     Route: 065
  2. RITUXIMAB [Concomitant]
     Active Substance: RITUXIMAB
     Indication: Follicular lymphoma
     Route: 065
  3. LENALIDOMIDE [Concomitant]
     Active Substance: LENALIDOMIDE
     Indication: Follicular lymphoma
     Route: 065

REACTIONS (6)
  - Pneumonia [Unknown]
  - Tuberculosis [Unknown]
  - Pyrexia [Unknown]
  - Cough [Unknown]
  - Pleural effusion [Unknown]
  - Product use in unapproved indication [Unknown]
